FAERS Safety Report 9363345 (Version 1)
Quarter: 2013Q2

REPORT INFORMATION
  Report Type: Spontaneous
  Country: ES (occurrence: ES)
  Receive Date: 20130624
  Receipt Date: 20130624
  Transmission Date: 20140414
  Serious: Yes (Life-Threatening, Other)
  Sender: FDA-Public Use
  Company Number: ES-VERTEX PHARMACEUTICALS INC-2013-007332

PATIENT
  Age: 43 Year
  Sex: Male

DRUGS (1)
  1. INCIVO [Suspect]
     Indication: CHRONIC HEPATITIS
     Route: 048
     Dates: start: 2013, end: 20130320

REACTIONS (4)
  - Hepatocellular injury [Recovered/Resolved]
  - Bacteraemia [Recovered/Resolved]
  - Ascites [Recovered/Resolved]
  - Off label use [Unknown]
